FAERS Safety Report 9739930 (Version 1)
Quarter: 2013Q4

REPORT INFORMATION
  Report Type: Spontaneous
  Country: US (occurrence: US)
  Receive Date: 20131209
  Receipt Date: 20131209
  Transmission Date: 20140711
  Serious: No
  Sender: FDA-Public Use
  Company Number: US-ASTELLAS-2013US012633

PATIENT
  Sex: Male

DRUGS (6)
  1. XTANDI [Suspect]
     Indication: PROSTATE CANCER
     Dosage: 160 MG, UID/QD
     Route: 048
     Dates: start: 2013, end: 2013
  2. ZOLOFT [Concomitant]
     Indication: DEPRESSION
     Dosage: 100 MG, UID/QD
     Route: 065
  3. CELEBREX [Concomitant]
     Indication: INFLAMMATION
     Dosage: 100 MG, BID
     Route: 065
  4. ZOFRAN                             /00955301/ [Concomitant]
     Indication: NAUSEA
     Dosage: UNK
     Route: 065
  5. ATIVAN [Concomitant]
     Indication: ANXIETY
     Dosage: 1 MG, UID/QD
     Route: 065
  6. AMBIEN [Concomitant]
     Indication: SLEEP DISORDER
     Dosage: UNK
     Route: 065

REACTIONS (1)
  - Drug ineffective [Recovered/Resolved]
